FAERS Safety Report 4335666-8 (Version None)
Quarter: 2004Q2

REPORT INFORMATION
  Report Type: 
  Country: None (occurrence: None)
  Receive Date: 20040409
  Receipt Date: 20030716
  Transmission Date: 20050107
  Serious: Yes (Life-Threatening, Hospitalization)
  Sender: FDA-Public Use
  Company Number: JP-GLAXOSMITHKLINE-A0416861A

PATIENT
  Age: 77 Year
  Sex: Male

DRUGS (12)
  1. NAVELBINE [Suspect]
     Indication: NON-SMALL CELL LUNG CANCER
     Dosage: 25MGM2 PER DAY
     Route: 042
     Dates: start: 20030624, end: 20030701
  2. CISPLATIN [Suspect]
     Indication: NON-SMALL CELL LUNG CANCER
     Route: 042
     Dates: start: 20030624, end: 20030624
  3. DECADRON [Concomitant]
     Dates: start: 20030624, end: 20030701
  4. NASEA [Concomitant]
     Dates: start: 20030624, end: 20030701
  5. MEVALOTIN [Concomitant]
     Dates: end: 20030606
  6. DIAZEPAM [Concomitant]
     Dates: end: 20030606
  7. SERMION [Concomitant]
     Dates: end: 20030706
  8. MUCOSTA [Concomitant]
     Dates: end: 20030606
  9. NIFEDIPINE [Concomitant]
     Dates: end: 20030706
  10. NEUROTROPIN [Concomitant]
     Dates: end: 20030706
  11. METOCLOPRAMIDE [Concomitant]
     Dates: end: 20030706
  12. CLARITHROMYCIN [Concomitant]
     Dates: end: 20030706

REACTIONS (14)
  - ABDOMINAL DISTENSION [None]
  - ABNORMAL FAECES [None]
  - AGRANULOCYTOSIS [None]
  - BOWEL SOUNDS ABNORMAL [None]
  - C-REACTIVE PROTEIN INCREASED [None]
  - CHANGE OF BOWEL HABIT [None]
  - DISSEMINATED INTRAVASCULAR COAGULATION [None]
  - FLATULENCE [None]
  - ILEUS PARALYTIC [None]
  - NEUTROPENIA [None]
  - PLATELET COUNT DECREASED [None]
  - PYREXIA [None]
  - VOMITING [None]
  - WHITE BLOOD CELL COUNT DECREASED [None]
